FAERS Safety Report 16116796 (Version 1)
Quarter: 2019Q2

REPORT INFORMATION
  Report Type: Spontaneous
  Country: US (occurrence: US)
  Receive Date: 20190325
  Receipt Date: 20190325
  Transmission Date: 20190711
  Serious: No
  Sender: FDA-Public Use
  Company Number: None

PATIENT
  Age: 46 Year
  Sex: Female
  Weight: 63 kg

DRUGS (1)
  1. EUCRISA [Suspect]
     Active Substance: CRISABOROLE
     Indication: ECZEMA EYELIDS
     Route: 061

REACTIONS (2)
  - Application site pain [None]
  - Dermatitis [None]

NARRATIVE: CASE EVENT DATE: 20190324
